FAERS Safety Report 15878108 (Version 2)
Quarter: 2019Q1

REPORT INFORMATION
  Report Type: Spontaneous
  Country: US (occurrence: US)
  Receive Date: 20190128
  Receipt Date: 20190226
  Transmission Date: 20190417
  Serious: No
  Sender: FDA-Public Use
  Company Number: US-009507513-1901USA008728

PATIENT
  Age: 85 Year
  Sex: Female

DRUGS (7)
  1. OMEPRAZOLE. [Concomitant]
     Active Substance: OMEPRAZOLE
  2. METOPROLOL. [Concomitant]
     Active Substance: METOPROLOL
  3. FUROSEMIDE. [Concomitant]
     Active Substance: FUROSEMIDE
  4. DILTIAZEM. [Concomitant]
     Active Substance: DILTIAZEM
  5. BELSOMRA [Suspect]
     Active Substance: SUVOREXANT
     Indication: INSOMNIA
     Dosage: 1 TABLET 1 DAILY
     Route: 048
     Dates: start: 20190108, end: 20190119
  6. RALOXIFENE. [Concomitant]
     Active Substance: RALOXIFENE
  7. POTASSIUM (UNSPECIFIED) [Concomitant]
     Active Substance: POTASSIUM

REACTIONS (1)
  - Drug ineffective [Not Recovered/Not Resolved]

NARRATIVE: CASE EVENT DATE: 20190110
